FAERS Safety Report 8069615-6 (Version None)
Quarter: 2011Q4

REPORT INFORMATION
  Report Type: 
  Country: None (occurrence: None)
  Receive Date: 20111221
  Receipt Date: 20110930
  Transmission Date: 20120403
  Serious: Yes (Hospitalization)
  Sender: FDA-Public Use
  Company Number: PHEH2011US00566

PATIENT
  Age: 11 Year
  Sex: Female
  Weight: 41.5 kg

DRUGS (2)
  1. EXJADE [Suspect]
     Dosage: 1000 MG, DAILY, ORAL, 1000 MG, DAILY, ORAL
     Route: 048
     Dates: start: 20090701
  2. PEPCID [Concomitant]

REACTIONS (1)
  - ABDOMINAL PAIN [None]
